FAERS Safety Report 4350982-1 (Version None)
Quarter: 2004Q2

REPORT INFORMATION
  Report Type: 
  Country: None (occurrence: None)
  Receive Date: 20040430
  Receipt Date: 20040421
  Transmission Date: 20050107
  Serious: Yes (Hospitalization)
  Sender: FDA-Public Use
  Company Number: JP-ROCHE-365146

PATIENT
  Age: 73 Year
  Sex: Female
  Weight: 53 kg

DRUGS (14)
  1. TAMIFLU [Suspect]
     Route: 048
     Dates: start: 20030209, end: 20030209
  2. RITUXAN [Suspect]
     Indication: MANTLE CELL LYMPHOMA
     Dosage: ROUTE REPORTED AS INTRAVENOUS DRIP.
     Route: 042
     Dates: start: 20030114, end: 20030114
  3. ENDOXAN [Suspect]
     Indication: MANTLE CELL LYMPHOMA
     Dosage: ROUTE REPORTED AS INTRAVENOUS DRIP.
     Route: 042
     Dates: start: 20030116, end: 20030116
  4. ADRIACIN [Suspect]
     Indication: MANTLE CELL LYMPHOMA
     Dosage: ROUTE REPORTED AS INTRAVENOUS DRIP.
     Route: 042
     Dates: start: 20030116, end: 20030116
  5. ONCOVIN [Suspect]
     Indication: MANTLE CELL LYMPHOMA
     Route: 042
     Dates: start: 20030116, end: 20030116
  6. PREDONINE [Concomitant]
     Indication: MANTLE CELL LYMPHOMA
     Dosage: DOSE INCREASED TO 30 MG/DAY FROM 16-18 JAN 2003
     Route: 048
     Dates: start: 19970615
  7. ALESION [Concomitant]
     Indication: INFUSION RELATED REACTION
     Route: 048
     Dates: start: 20030114
  8. LOXONIN [Concomitant]
     Indication: INFUSION RELATED REACTION
     Route: 048
     Dates: start: 20030114
  9. PERSANTIN [Concomitant]
     Indication: PROTEINURIA
     Route: 048
     Dates: start: 20030815
  10. GASTER [Concomitant]
     Route: 048
     Dates: start: 20030815
  11. DEPAS [Concomitant]
     Route: 048
     Dates: start: 20030815
  12. MYSLEE [Concomitant]
     Indication: INSOMNIA
     Route: 048
     Dates: start: 20030115
  13. RIZE [Concomitant]
     Indication: HEADACHE
     Dosage: 5 MG ONCE OR TWICE DAILY PRN.
     Route: 048
     Dates: start: 20030115
  14. SOLU-CORTEF [Concomitant]
     Indication: ERYTHEMA
     Dosage: ROUTE REPORTED AS INTRAVENOUS DRIP.
     Route: 042
     Dates: start: 20030126, end: 20030131

REACTIONS (8)
  - DIARRHOEA [None]
  - INFUSION RELATED REACTION [None]
  - MALAISE [None]
  - RENAL FAILURE [None]
  - RENAL FAILURE ACUTE [None]
  - SYNCOPE VASOVAGAL [None]
  - URTICARIA [None]
  - VOMITING [None]
